FAERS Safety Report 10743399 (Version 2)
Quarter: 2015Q1

REPORT INFORMATION
  Report Type: Spontaneous
  Country: DE (occurrence: DE)
  Receive Date: 20150128
  Receipt Date: 20150309
  Transmission Date: 20150721
  Serious: Yes (Hospitalization)
  Sender: FDA-Public Use
  Company Number: DE-ABBVIE-15K-062-1336437-00

PATIENT
  Age: 49 Year
  Sex: Female
  Weight: 75 kg

DRUGS (7)
  1. HUMIRA [Suspect]
     Active Substance: ADALIMUMAB
     Indication: PSORIASIS
     Route: 058
     Dates: start: 20101105, end: 20150102
  2. LEFLUNOMIDE. [Concomitant]
     Active Substance: LEFLUNOMIDE
     Indication: PRODUCT USED FOR UNKNOWN INDICATION
  3. HUMIRA [Suspect]
     Active Substance: ADALIMUMAB
     Indication: PSORIATIC ARTHROPATHY
  4. NACL [Concomitant]
     Active Substance: SODIUM CHLORIDE
     Indication: HYPONATRAEMIA
     Dosage: TEMPORARY
  5. CICLOSPORINE [Concomitant]
     Active Substance: CYCLOSPORINE
     Indication: PRODUCT USED FOR UNKNOWN INDICATION
  6. PANTOZOL [Concomitant]
     Active Substance: PANTOPRAZOLE SODIUM
     Indication: PRODUCT USED FOR UNKNOWN INDICATION
  7. DECORTIN [Concomitant]
     Active Substance: PREDNISONE
     Indication: PRODUCT USED FOR UNKNOWN INDICATION
     Dosage: 60MG, 40MG, 20MG ETC EX
     Route: 048

REACTIONS (4)
  - Blood creatine phosphokinase increased [Unknown]
  - Blood sodium decreased [Unknown]
  - Skin disorder [Recovering/Resolving]
  - Lupus-like syndrome [Recovered/Resolved]

NARRATIVE: CASE EVENT DATE: 2014
